FAERS Safety Report 8398108-1 (Version None)
Quarter: 2012Q2

REPORT INFORMATION
  Report Type: 
  Country: None (occurrence: None)
  Receive Date: 20120524
  Receipt Date: 20120515
  Transmission Date: 20120825
  Serious: Yes (Other)
  Sender: FDA-Public Use
  Company Number: 2011SP040978

PATIENT
  Age: 56 Year
  Sex: Female

DRUGS (3)
  1. RIBAVIRIN [Suspect]
     Indication: HEPATITIS C
     Dates: start: 20110616
  2. VICTRELIS [Suspect]
     Indication: HEPATITIS C
     Dates: start: 20110728, end: 20110805
  3. PEG-INTRON [Suspect]
     Indication: HEPATITIS C
     Dates: start: 20110616

REACTIONS (15)
  - HYPERHIDROSIS [None]
  - INJECTION SITE RASH [None]
  - ALOPECIA [None]
  - WEIGHT DECREASED [None]
  - HALLUCINATION [None]
  - BALANCE DISORDER [None]
  - FALL [None]
  - TREMOR [None]
  - HYPOPHAGIA [None]
  - RED BLOOD CELL COUNT DECREASED [None]
  - INJECTION SITE ERYTHEMA [None]
  - FAECAL INCONTINENCE [None]
  - DIARRHOEA [None]
  - HEADACHE [None]
  - NAUSEA [None]
